FAERS Safety Report 10224458 (Version 2)
Quarter: 2014Q3

REPORT INFORMATION
  Report Type: Spontaneous
  Country: JP (occurrence: JP)
  Receive Date: 20140609
  Receipt Date: 20140724
  Transmission Date: 20150326
  Serious: Yes (Hospitalization)
  Sender: FDA-Public Use
  Company Number: JP-SA-2014SA070829

PATIENT
  Age: 46 Year
  Sex: Male
  Weight: 67.1 kg

DRUGS (13)
  1. PLETAAL [Concomitant]
     Active Substance: CILOSTAZOL
     Route: 048
     Dates: start: 20140408
  2. LIPITOR [Suspect]
     Active Substance: ATORVASTATIN CALCIUM
     Indication: HYPERCHOLESTEROLAEMIA
     Dosage: LIPITOR TABLET 10MG (ATORVASTATIN)
     Route: 048
     Dates: start: 20140404, end: 20140406
  3. NITOROL [Concomitant]
     Active Substance: ISOSORBIDE DINITRATE
     Dates: start: 20140404, end: 20140404
  4. GASTER [Concomitant]
     Active Substance: FAMOTIDINE
     Dates: start: 20140404, end: 20140404
  5. PLAVIX [Suspect]
     Active Substance: CLOPIDOGREL BISULFATE
     Indication: THROMBOSIS PROPHYLAXIS
     Route: 048
     Dates: start: 20140404, end: 20140406
  6. IOPAMIRON [Concomitant]
     Active Substance: IOPAMIDOL
     Dates: start: 20140404, end: 20140404
  7. NEXIUM [Suspect]
     Active Substance: ESOMEPRAZOLE MAGNESIUM
     Indication: PROPHYLAXIS AGAINST GASTROINTESTINAL ULCER
     Dosage: NEXIUM CAPSULE 20 MG (ESOMEPRAZOLE)
     Route: 048
     Dates: start: 20140404, end: 20140406
  8. HEPARIN [Concomitant]
     Active Substance: HEPARIN SODIUM
     Dates: start: 20140404, end: 20140404
  9. NORADRENALIN [Concomitant]
     Active Substance: NOREPINEPHRINE\NOREPINEPHRINE BITARTRATE
     Dates: start: 20140404, end: 20140404
  10. BAYASPIRIN [Suspect]
     Active Substance: ASPIRIN
     Indication: THROMBOSIS PROPHYLAXIS
     Dosage: BAYASPIRIN TABLET 100 MG (ASPIRIN)
     Route: 048
     Dates: start: 20140404, end: 20140406
  11. PLETAAL [Concomitant]
     Active Substance: CILOSTAZOL
     Route: 048
     Dates: start: 20140404, end: 20140404
  12. BAYASPIRIN [Suspect]
     Active Substance: ASPIRIN
     Indication: THROMBOSIS PROPHYLAXIS
     Dosage: BAYASPIRIN TABLET 100 MG (ASPIRIN)
     Route: 048
     Dates: start: 20140415
  13. CEFTRIAXONE SODIUM. [Suspect]
     Active Substance: CEFTRIAXONE SODIUM
     Indication: INFECTION
     Route: 041
     Dates: start: 20140405, end: 20140405

REACTIONS (1)
  - Acute generalised exanthematous pustulosis [Recovered/Resolved]

NARRATIVE: CASE EVENT DATE: 20140405
